FAERS Safety Report 12630876 (Version 2)
Quarter: 2016Q3

REPORT INFORMATION
  Report Type: Spontaneous
  Country: US (occurrence: US)
  Receive Date: 20160808
  Receipt Date: 20160809
  Transmission Date: 20161109
  Serious: No
  Sender: FDA-Public Use
  Company Number: US-PFIZER INC-2015289976

PATIENT
  Age: 59 Year
  Sex: Male

DRUGS (23)
  1. PANTOPRAZOLE SODIUM SESQUIHYDRATE [Concomitant]
     Active Substance: PANTOPRAZOLE SODIUM
     Indication: PRODUCT USED FOR UNKNOWN INDICATION
     Dosage: 40 MG, (1 DF, STRENGTH: 40 MG, FREQ: 1 DAY; INTERVAL: 1)
     Route: 048
  2. VANCOMYCIN [Suspect]
     Active Substance: VANCOMYCIN
     Indication: BACTERAEMIA
     Dosage: 750 MG, 2X/DAY
     Route: 042
  3. MIRALAX [Concomitant]
     Active Substance: POLYETHYLENE GLYCOL 3350
     Indication: PRODUCT USED FOR UNKNOWN INDICATION
     Dosage: (1 PACKET MIXED WITH 8 OZ OF FLUID, FREQ: 1 DAY; INTERVAL: 1)
     Route: 048
  4. HYDRALAZINE [Concomitant]
     Active Substance: HYDRALAZINE HYDROCHLORIDE
     Indication: PRODUCT USED FOR UNKNOWN INDICATION
     Dosage: 25 MG, (1 DF, STRENGTH: 25 MG, TOTAL DOSE: 75 MG, FREQ: 1 HOUR; INTERVAL: 8)
     Route: 048
  5. VANCOMYCIN [Suspect]
     Active Substance: VANCOMYCIN
     Indication: PRODUCT USED FOR UNKNOWN INDICATION
     Dosage: 500 UNK, (TOTAL DOSE: 1000 MG, EVERY 12 HOURS, FREQ: 2 DAY; INTERVAL: 1)
  6. ALBUTEROL. [Concomitant]
     Active Substance: ALBUTEROL
     Indication: PRODUCT USED FOR UNKNOWN INDICATION
     Dosage: UNK
  7. ASPIRIN. [Concomitant]
     Active Substance: ASPIRIN
     Indication: PRODUCT USED FOR UNKNOWN INDICATION
     Dosage: 81 MG, (1 DF, STRENGTH: 81 MG, FREQ: 1 DAY; INTERVAL: 1)
     Route: 048
  8. CARVEDILOL. [Concomitant]
     Active Substance: CARVEDILOL
     Indication: PRODUCT USED FOR UNKNOWN INDICATION
     Dosage: 12.5 MG, (1 DF, STRENGTH: 12.5 MG, WITH FOOD, FREQ: 2 DAY; INTERVAL: 1)
     Route: 048
  9. MIRTAZAPINE. [Concomitant]
     Active Substance: MIRTAZAPINE
     Indication: PRODUCT USED FOR UNKNOWN INDICATION
     Dosage: 45 MG, (1 DF, STRENGTH: 45 MG, BEFORE BEDTIME IN THE EVENING, FREQ: 1 DAY; INTERVAL: 1)
     Route: 048
  10. VFEND [Concomitant]
     Active Substance: VORICONAZOLE
     Dosage: 1 DF, (1 DF, STRENGTH: 200MG, TOTAL DOSE: 400MG, FREQ: 1 HOUR; INTERVAL: 12)
     Route: 048
  11. AMLODIPINE BESILATE [Concomitant]
     Active Substance: AMLODIPINE BESYLATE
     Indication: PRODUCT USED FOR UNKNOWN INDICATION
     Dosage: 5 MG, (1 DF, STRENGTH: 5 MG, FREQ: 1 DAY; INTERVAL: 1)
  12. BUMEX [Suspect]
     Active Substance: BUMETANIDE
     Indication: PRODUCT USED FOR UNKNOWN INDICATION
     Dosage: 1 MG, 2X/DAY (1 MG, 2 MG, FREQ: 2 DAY; INTERVAL: 1)
     Route: 048
  13. VANCOMYCIN [Suspect]
     Active Substance: VANCOMYCIN
     Dosage: 700 MG, (750 MG, TOTAL DOSE: 1500 MG, FREQ: 2 DAY; INTERVAL: 1)
  14. FUROSEMIDE. [Concomitant]
     Active Substance: FUROSEMIDE
     Indication: PRODUCT USED FOR UNKNOWN INDICATION
     Dosage: 80 MG, (1 DF, STRENGTH: 40 MG, TOTAL DOSE: 80 MG, FREQ: 2 DAY; INTERVAL: 1)
     Route: 048
  15. IBUPROFEN. [Concomitant]
     Active Substance: IBUPROFEN
     Indication: PRODUCT USED FOR UNKNOWN INDICATION
     Dosage: 600 MG, (1 DF, STRENGTH: 600 MG, TOTAL DOSE: 1800, FREQ: 3 DAY; INTERVAL: 1)
     Route: 048
  16. OXYCODONE HYDROCHLORIDE. [Concomitant]
     Active Substance: OXYCODONE HYDROCHLORIDE
     Indication: PRODUCT USED FOR UNKNOWN INDICATION
     Dosage: 60 MG, AS NEEDED (30 MG, TOTAL DOSE: 60 MG, AS REQUIRED, FREQ: 2 DAY; INTERVAL: 1)
     Route: 048
  17. PRAVASTATIN SODIUM. [Concomitant]
     Active Substance: PRAVASTATIN SODIUM
     Indication: PRODUCT USED FOR UNKNOWN INDICATION
     Dosage: 40 MG, (1 DF, STRENGTH: 40 MG, FREQ: 1 DAY; INTERVAL: 1)
     Route: 048
  18. HUMULIN NOS [Concomitant]
     Active Substance: INSULIN HUMAN
     Indication: PRODUCT USED FOR UNKNOWN INDICATION
     Dosage: 25 IU, (25 UNITS, FREQ: 2 DAY; INTERVAL:1)
     Route: 058
  19. HUMULIN NOS [Concomitant]
     Active Substance: INSULIN HUMAN
     Dosage: UNK
  20. ALPRAZOLAM. [Concomitant]
     Active Substance: ALPRAZOLAM
     Indication: PRODUCT USED FOR UNKNOWN INDICATION
     Dosage: 1 MG, (1 DF, STRENGTH: 1 MG, FREQ: 2 DAY; INTERVAL: 1)
  21. LINAGLIPTIN [Concomitant]
     Active Substance: LINAGLIPTIN
     Indication: PRODUCT USED FOR UNKNOWN INDICATION
     Dosage: 5 MG, (1 DF, STRENGTH: 5 MG, FREQ: 1 DAY; INTERVAL: 1)
     Route: 048
  22. LOSARTAN. [Concomitant]
     Active Substance: LOSARTAN
     Indication: PRODUCT USED FOR UNKNOWN INDICATION
     Dosage: 25 MG, (1 DF, STRENGTH: 25 MG)
     Route: 048
  23. POTASSIUM [Concomitant]
     Active Substance: POTASSIUM
     Indication: PRODUCT USED FOR UNKNOWN INDICATION
     Dosage: 20 MG, (20 MG, FREQ: 1 DAY; INTERVAL: 1)
     Route: 048

REACTIONS (4)
  - Antibiotic level above therapeutic [Unknown]
  - Rash [Unknown]
  - Blood creatinine increased [Unknown]
  - Dehydration [Unknown]
